FAERS Safety Report 7772523-9 (Version None)
Quarter: 2011Q3

REPORT INFORMATION
  Report Type: 
  Country: None (occurrence: None)
  Receive Date: 20110922
  Receipt Date: 20110630
  Transmission Date: 20111222
  Serious: No
  Sender: FDA-Public Use
  Company Number: US-ASTRAZENECA-2009SE12060

PATIENT
  Age: 42 Year
  Sex: Female

DRUGS (10)
  1. ZONEGRAN [Concomitant]
  2. PROVIGIL [Concomitant]
  3. ABILIFY [Concomitant]
  4. MORPHINE [Concomitant]
  5. PHENERGAN HCL [Concomitant]
  6. SEROQUEL [Suspect]
     Indication: SLEEP DISORDER
     Dosage: AT NIGHT
     Route: 048
  7. SYNTHROID [Concomitant]
  8. ZOMIG [Suspect]
     Indication: MIGRAINE
     Dosage: 4 TO 5 TIMES PER WEEK
     Route: 048
     Dates: start: 19980101
  9. FENTANYL [Concomitant]
  10. IBUPROFEN [Concomitant]

REACTIONS (4)
  - HYPERHIDROSIS [None]
  - FEELING COLD [None]
  - CHEST DISCOMFORT [None]
  - DRUG EFFECT DECREASED [None]
